FAERS Safety Report 6451462-X (Version None)
Quarter: 2009Q4

REPORT INFORMATION
  Report Type: 
  Country: None (occurrence: None)
  Receive Date: 20091123
  Receipt Date: 20090227
  Transmission Date: 20100525
  Serious: No
  Sender: FDA-Public Use
  Company Number: US-BRISTOL-MYERS SQUIBB COMPANY-14530208

PATIENT
  Age: 54 Year
  Sex: Male
  Weight: 94 kg

DRUGS (3)
  1. COAPROVEL [Suspect]
     Indication: HYPERTENSION
     Dosage: 1 DOSAGEFORM=300MG+25MG
     Route: 048
     Dates: start: 20080101
  2. METOPROLOL TARTRATE [Concomitant]
     Indication: HYPERTENSION
     Dosage: TABS
     Route: 048
     Dates: start: 20080101
  3. ACETYLSALICYLIC ACID [Concomitant]
     Indication: CARDIOVASCULAR EVENT PROPHYLAXIS
     Dosage: TABS
     Route: 048
     Dates: start: 20080101

REACTIONS (1)
  - ERECTILE DYSFUNCTION [None]
